FAERS Safety Report 12664454 (Version 1)
Quarter: 2016Q3

REPORT INFORMATION
  Report Type: Spontaneous
  Country: US (occurrence: US)
  Receive Date: 20160818
  Receipt Date: 20160818
  Transmission Date: 20161109
  Serious: No
  Sender: FDA-Public Use
  Company Number: US-PFIZER INC-2016386999

PATIENT
  Age: 60 Year
  Sex: Female

DRUGS (5)
  1. PROZAC [Concomitant]
     Active Substance: FLUOXETINE HYDROCHLORIDE
     Indication: DEPRESSION
     Dosage: 20 MG, 1X/DAY
  2. THYROXINE [Concomitant]
     Active Substance: LEVOTHYROXINE
     Indication: THYROIDITIS
     Dosage: 75 UG, 1X/DAY
  3. LIPITOR [Suspect]
     Active Substance: ATORVASTATIN CALCIUM
     Indication: BLOOD CHOLESTEROL
     Dosage: 10 MG, 1X/DAY
     Route: 048
  4. WELLBUTRIN XL [Concomitant]
     Active Substance: BUPROPION HYDROCHLORIDE
     Indication: DEPRESSION
     Dosage: UNK, 1X/DAY (150 MG OR 200 MG)
  5. CELEBREX [Concomitant]
     Active Substance: CELECOXIB
     Indication: OSTEOARTHRITIS
     Dosage: 100 MG, UNK (TAKES IT OCCASIONALLY, DID NOT TAKE IT EVERY DAY)
     Route: 048

REACTIONS (1)
  - Myalgia [Not Recovered/Not Resolved]
